FAERS Safety Report 9484769 (Version 1)
Quarter: 2013Q3

REPORT INFORMATION
  Report Type: Spontaneous
  Country: US (occurrence: US)
  Receive Date: 20130828
  Receipt Date: 20130828
  Transmission Date: 20140515
  Serious: Yes (Death, Hospitalization)
  Sender: FDA-Public Use
  Company Number: US-GLAXOSMITHKLINE-A1039145A

PATIENT
  Age: 74 Year
  Sex: Male

DRUGS (2)
  1. ADVAIR [Suspect]
     Indication: LUNG DISORDER
     Dosage: 1PUFF TWICE PER DAY
     Route: 055
     Dates: start: 201308
  2. UNKNOWN [Concomitant]

REACTIONS (2)
  - Cardiac aneurysm [Fatal]
  - Lung disorder [Fatal]
